FAERS Safety Report 14491830 (Version 2)
Quarter: 2018Q1

REPORT INFORMATION
  Report Type: Report from Study
  Country: US (occurrence: MX)
  Receive Date: 20180206
  Receipt Date: 20180227
  Transmission Date: 20180509
  Serious: Yes (Death, Other)
  Sender: FDA-Public Use
  Company Number: US-SUNOVION-2018SUN000348

PATIENT
  Sex: Male

DRUGS (9)
  1. INDACATEROL AND GLYCOPYRROLATE [Suspect]
     Active Substance: GLYCOPYRROLATE\INDACATEROL MALEATE
     Dosage: 1 DF(GLYCOPYRRONIUM BROMIDE 50UG, INDACATEROL 110UG), QD
     Route: 055
  2. MIFLONIDE [Suspect]
     Active Substance: BUDESONIDE
     Indication: CHRONIC OBSTRUCTIVE PULMONARY DISEASE
     Dosage: 200 ?G, QD
     Route: 055
     Dates: start: 201801, end: 201801
  3. SPIRONOLACTONE. [Concomitant]
     Active Substance: SPIRONOLACTONE
  4. SERETAIDE [Concomitant]
     Active Substance: FLUTICASONE PROPIONATE\SALMETEROL XINAFOATE
  5. FUROSEMIDE. [Concomitant]
     Active Substance: FUROSEMIDE
  6. OXYGEN. [Concomitant]
     Active Substance: OXYGEN
  7. INDACATEROL AND GLYCOPYRROLATE [Suspect]
     Active Substance: GLYCOPYRROLATE\INDACATEROL MALEATE
     Indication: CHRONIC OBSTRUCTIVE PULMONARY DISEASE
     Dosage: 1 DF(GLYCOPYRRONIUM BROMIDE 50UG, INDACATEROL 110UG), QD
     Route: 055
     Dates: end: 2016
  8. COMBIVENT [Concomitant]
     Active Substance: ALBUTEROL SULFATE\IPRATROPIUM BROMIDE
  9. LISOMUCIL [Concomitant]
     Active Substance: CARBOCYSTEINE

REACTIONS (1)
  - Cardio-respiratory arrest [Fatal]
